FAERS Safety Report 13706327 (Version 4)
Quarter: 2017Q4

REPORT INFORMATION
  Report Type: Spontaneous
  Country: US (occurrence: US)
  Receive Date: 20170630
  Receipt Date: 20171018
  Transmission Date: 20180320
  Serious: No
  Sender: FDA-Public Use
  Company Number: US-PFIZER INC-2017282039

PATIENT
  Age: 55 Year
  Sex: Female
  Weight: 61 kg

DRUGS (15)
  1. TESSALON [Suspect]
     Active Substance: BENZONATATE
     Indication: COUGH
  2. ALBUTEROL. [Suspect]
     Active Substance: ALBUTEROL
     Indication: COUGH
  3. FLONASE [Concomitant]
     Active Substance: FLUTICASONE PROPIONATE
     Dosage: UNK, AS NEEDED
     Dates: start: 20170520, end: 20170705
  4. BELSOMRA [Concomitant]
     Active Substance: SUVOREXANT
     Dosage: UNK, AS NEEDED
     Dates: start: 201602
  5. PREMARIN [Concomitant]
     Active Substance: ESTROGENS, CONJUGATED
     Dosage: 0.625 MG, UNK
  6. PREDNISONE. [Suspect]
     Active Substance: PREDNISONE
     Dosage: 10 MG, 1X/DAY
     Route: 048
     Dates: start: 20170525, end: 20170526
  7. MEDROXYPROGESTERONE [Concomitant]
     Active Substance: MEDROXYPROGESTERONE
     Dosage: 5 MG, UNK (ALTERNATE EVERY 4 OTHER DAY HIGH DOSE AND LOW DOSE)
  8. PREDNISONE. [Suspect]
     Active Substance: PREDNISONE
     Indication: RESPIRATORY TRACT CONGESTION
     Dosage: 30 MG, 1X/DAY
     Route: 048
     Dates: start: 20170520, end: 20170522
  9. TESSALON [Suspect]
     Active Substance: BENZONATATE
     Indication: RESPIRATORY TRACT CONGESTION
     Dosage: UNK
     Dates: start: 20170519
  10. PREDNISOLONE. [Suspect]
     Active Substance: PREDNISOLONE
     Dosage: UNK
  11. ZYRTEC [Concomitant]
     Active Substance: CETIRIZINE HYDROCHLORIDE
     Dosage: UNK, AS NEEDED
     Dates: start: 20170520, end: 20170705
  12. ALBUTEROL. [Suspect]
     Active Substance: ALBUTEROL
     Indication: RESPIRATORY TRACT CONGESTION
     Dosage: UNK
     Dates: start: 20170519
  13. MEDROXYPROGESTERONE [Concomitant]
     Active Substance: MEDROXYPROGESTERONE
     Dosage: 2.5 MG, UNK (ALTERNATE EVERY 4 OTHER DAY HIGH DOSE AND LOW DOSE)
  14. PREDNISONE. [Suspect]
     Active Substance: PREDNISONE
     Indication: COUGH
     Dosage: 20 MG, 1X/DAY
     Route: 048
     Dates: start: 20170523, end: 20170524
  15. PREMARIN [Concomitant]
     Active Substance: ESTROGENS, CONJUGATED
     Dosage: 1.25 MG, UNK

REACTIONS (3)
  - Parosmia [Not Recovered/Not Resolved]
  - Ageusia [Not Recovered/Not Resolved]
  - Anosmia [Not Recovered/Not Resolved]

NARRATIVE: CASE EVENT DATE: 20170522
